FAERS Safety Report 9452552 (Version 1)
Quarter: 2013Q3

REPORT INFORMATION
  Report Type: Spontaneous
  Country: US (occurrence: None)
  Receive Date: 20130808
  Receipt Date: 20130808
  Transmission Date: 20140515
  Serious: No
  Sender: FDA-Public Use
  Company Number: None

PATIENT
  Sex: 0

DRUGS (2)
  1. CANASA (MESALAMINE) SUPPOSITORY, 1000MG [Suspect]
     Dosage: SUPPOSITORY EVERY NIGHT USED FOR 2 YEARS.
  2. ASACOL [Suspect]
     Dosage: 1000MG A DAY, 200 MG WITH EVERY MEAL,ORAL, TAKEN FOR 1 YEAR.

REACTIONS (1)
  - Neuropathy peripheral [None]
